FAERS Safety Report 7345211-0 (Version None)
Quarter: 2011Q1

REPORT INFORMATION
  Report Type: 
  Country: None (occurrence: None)
  Receive Date: 20110310
  Receipt Date: 20110307
  Transmission Date: 20110831
  Serious: Yes (Death, Hospitalization, Other)
  Sender: FDA-Public Use
  Company Number: ZA-ABBOTT-11P-143-0709906-00

PATIENT
  Sex: Male

DRUGS (1)
  1. HUMIRA [Suspect]
     Indication: RHEUMATOID ARTHRITIS
     Route: 058
     Dates: start: 20100701, end: 20110201

REACTIONS (6)
  - PNEUMONIA [None]
  - CARDIAC ENZYMES INCREASED [None]
  - CARDIAC ARREST [None]
  - RESPIRATORY FAILURE [None]
  - ACUTE MYOCARDIAL INFARCTION [None]
  - HYPERSENSITIVITY [None]
